FAERS Safety Report 13484499 (Version 1)
Quarter: 2017Q2

REPORT INFORMATION
  Report Type: Spontaneous
  Country: US (occurrence: US)
  Receive Date: 20170425
  Receipt Date: 20170425
  Transmission Date: 20170830
  Serious: No
  Sender: FDA-Public Use
  Company Number: US-LUPIN PHARMACEUTICALS INC.-2016-04390

PATIENT
  Age: 80 Year
  Sex: Male

DRUGS (1)
  1. MINOCYCLINE [Suspect]
     Active Substance: MINOCYCLINE\MINOCYCLINE HYDROCHLORIDE
     Indication: RHINOPHYMA
     Dosage: UNK UNK,UNK,UNKNOWN
     Route: 048

REACTIONS (2)
  - Retinal pigmentation [Recovering/Resolving]
  - Skin hyperpigmentation [Recovering/Resolving]
